FAERS Safety Report 13270404 (Version 3)
Quarter: 2017Q2

REPORT INFORMATION
  Report Type: Report from Study
  Country: GB (occurrence: GB)
  Receive Date: 20170224
  Receipt Date: 20170607
  Transmission Date: 20170830
  Serious: Yes (Other)
  Sender: FDA-Public Use
  Company Number: GB-JNJFOC-20170221199

PATIENT
  Age: 61 Year
  Sex: Female
  Weight: 57.6 kg

DRUGS (5)
  1. FULTIUM [Concomitant]
     Active Substance: CHOLECALCIFEROL
     Dosage: 800 UNITS
     Route: 048
     Dates: start: 20170509
  2. SALBUTAMOL [Suspect]
     Active Substance: ALBUTEROL
     Indication: PRODUCT USED FOR UNKNOWN INDICATION
     Route: 065
     Dates: start: 20150523
  3. PREDNISOLONE. [Suspect]
     Active Substance: PREDNISOLONE
     Indication: CHRONIC OBSTRUCTIVE PULMONARY DISEASE
     Dosage: STRENGTH: 5 MG
     Route: 065
  4. AMOXICILLIN. [Concomitant]
     Active Substance: AMOXICILLIN
     Route: 065
  5. STELARA [Suspect]
     Active Substance: USTEKINUMAB
     Indication: PSORIASIS
     Dosage: APPROXIMATELY TOTAL 20 INJECTIONS WERE ADMINISTERED TO THE PATIENT
     Route: 058
     Dates: start: 20120321

REACTIONS (8)
  - Palpitations [Recovering/Resolving]
  - Tonsillitis bacterial [Unknown]
  - Chronic obstructive pulmonary disease [Recovered/Resolved]
  - Chest pain [Recovering/Resolving]
  - Adverse drug reaction [Unknown]
  - Lower respiratory tract infection [Recovered/Resolved]
  - Pharyngeal ulceration [Unknown]
  - Lymphadenopathy [Unknown]

NARRATIVE: CASE EVENT DATE: 201608
